FAERS Safety Report 24114493 (Version 1)
Quarter: 2024Q3

REPORT INFORMATION
  Report Type: Report from Study
  Country: IT (occurrence: IT)
  Receive Date: 20240720
  Receipt Date: 20240720
  Transmission Date: 20241017
  Serious: Yes (Other)
  Sender: RANBAXY
  Company Number: IT-SUN PHARMACEUTICAL INDUSTRIES LTD-2024RR-457717

PATIENT
  Age: 50 Year
  Sex: Male

DRUGS (2)
  1. IMATINIB [Suspect]
     Active Substance: IMATINIB
     Indication: Gastrointestinal stromal tumour
     Dosage: FIRST-LINE THERAPY
     Route: 065
     Dates: start: 201805
  2. SUNITINIB [Suspect]
     Active Substance: SUNITINIB
     Indication: Gastrointestinal stromal tumour
     Dosage: SECOND LINE-THERAPY
     Route: 065
     Dates: start: 202001

REACTIONS (6)
  - Disease progression [Unknown]
  - Therapeutic product effect incomplete [Unknown]
  - Condition aggravated [Unknown]
  - Abdominal pain [Unknown]
  - Intestinal obstruction [Unknown]
  - Ascites [Unknown]

NARRATIVE: CASE EVENT DATE: 20200101
